FAERS Safety Report 9537027 (Version 1)
Quarter: 2013Q3

REPORT INFORMATION
  Report Type: Spontaneous
  Country: US (occurrence: None)
  Receive Date: 20130918
  Receipt Date: 20130918
  Transmission Date: 20140515
  Serious: Yes (Hospitalization)
  Sender: FDA-Public Use
  Company Number: None

PATIENT
  Age: 70 Year
  Sex: Male
  Weight: 78.9 kg

DRUGS (7)
  1. XARELTO [Suspect]
     Indication: ATRIAL FIBRILLATION
     Dosage: 1 TABLET QD ORAL
     Route: 048
     Dates: start: 20130206, end: 20130917
  2. ZETIA [Concomitant]
  3. TORPOROL XL [Concomitant]
  4. ASPIRIN [Concomitant]
  5. OTC CALCIUM + VITD [Concomitant]
  6. OTC MULTIVITAMIN [Concomitant]
  7. LIPITOR [Concomitant]

REACTIONS (1)
  - Subdural haematoma [None]
